FAERS Safety Report 12487166 (Version 1)
Quarter: 2016Q2

REPORT INFORMATION
  Report Type: Spontaneous
  Country: GB (occurrence: GB)
  Receive Date: 20160622
  Receipt Date: 20160622
  Transmission Date: 20160815
  Serious: Yes (Hospitalization, Disabling)
  Sender: FDA-Public Use
  Company Number: GB-BEH-2016070408

PATIENT
  Age: 16 Year
  Sex: Female

DRUGS (2)
  1. ALBUREX [Suspect]
     Active Substance: ALBUMIN HUMAN
     Indication: ANEURYSMAL BONE CYST
     Dosage: UNK
     Route: 042
     Dates: start: 20160507, end: 20160507
  2. DOXYCYCLIN /00055705/ [Suspect]
     Active Substance: DOXYCYCLINE
     Indication: ANEURYSMAL BONE CYST
     Dosage: 500 MG, UNK
     Route: 042
     Dates: start: 20160507, end: 20160507

REACTIONS (1)
  - Embolism [Not Recovered/Not Resolved]

NARRATIVE: CASE EVENT DATE: 20160507
